FAERS Safety Report 10030563 (Version 1)
Quarter: 2014Q1

REPORT INFORMATION
  Report Type: Spontaneous
  Country: US (occurrence: US)
  Receive Date: 20140323
  Receipt Date: 20140323
  Transmission Date: 20141002
  Serious: No
  Sender: FDA-Public Use
  Company Number: US-ALLERGAN-1318191US

PATIENT
  Age: 67 Year
  Sex: Female

DRUGS (6)
  1. LATISSE 0.03% [Suspect]
     Indication: GROWTH OF EYELASHES
     Dosage: 2 GTT, UNK - THREE TIMES PER WEEK
     Dates: start: 201309
  2. LATISSE 0.03% [Suspect]
     Dosage: 2 GTT, UNK
     Route: 061
     Dates: start: 201211, end: 201309
  3. MURINE TEARS                       /00880201/ [Concomitant]
     Indication: DRY EYE
     Dosage: 2 GTT, UNK
     Route: 047
  4. MURINE TEARS                       /00880201/ [Concomitant]
     Dosage: 2 GTT, BID
     Route: 047
  5. MULTIVITAMIN                       /00097801/ [Concomitant]
     Indication: SUPPLEMENTATION THERAPY
     Dosage: UNK
  6. OMEGA 3                            /01333901/ [Concomitant]
     Indication: SUPPLEMENTATION THERAPY
     Dosage: UNK

REACTIONS (3)
  - Inappropriate schedule of drug administration [Unknown]
  - Wrong technique in drug usage process [Unknown]
  - Drug ineffective [Unknown]
